FAERS Safety Report 8942101 (Version 1)
Quarter: 2012Q4

REPORT INFORMATION
  Report Type: 
  Country: PE (occurrence: PE)
  Receive Date: 20121130
  Receipt Date: 20121130
  Transmission Date: 20130627
  Serious: Yes (Death)
  Sender: FDA-Public Use
  Company Number: PE-GLAXOSMITHKLINE-A1003510A

PATIENT
  Age: 83 Year
  Sex: Female

DRUGS (3)
  1. SERETIDE [Suspect]
     Indication: ASTHMA
     Dosage: 2PUFF per day
     Route: 055
     Dates: start: 20110106
  2. DIABETES MEDICATION [Concomitant]
  3. HYPERTENSION MED [Concomitant]

REACTIONS (2)
  - Chronic obstructive pulmonary disease [Fatal]
  - Respiratory disorder [Unknown]
